FAERS Safety Report 6007140-4 (Version None)
Quarter: 2008Q4

REPORT INFORMATION
  Report Type: 
  Country: None (occurrence: None)
  Receive Date: 20081215
  Receipt Date: 20081204
  Transmission Date: 20090506
  Serious: Yes (Hospitalization, Other)
  Sender: FDA-Public Use
  Company Number: 2008SP024790

PATIENT
  Age: 71 Year
  Sex: Male

DRUGS (9)
  1. DIAFUSOR      (GLYCERYL TRINITRATE) (GLYCERYL TRINITRATE) [Suspect]
     Indication: DRUG USE FOR UNKNOWN INDICATION
     Dosage: 15 MG; QD; CUT
     Route: 003
     Dates: start: 19990615, end: 20010318
  2. FUCIDINE       /00065701/ [Concomitant]
  3. ZYLORIC      /00003301/ [Concomitant]
  4. XANAX [Concomitant]
  5. DIGITALINE NATIVELLE [Concomitant]
  6. AMIODARONE HCL [Concomitant]
  7. FUROSEMIDE [Concomitant]
  8. BUMETANIDE [Concomitant]
  9. FLUINDIONE [Concomitant]

REACTIONS (1)
  - JAUNDICE [None]
